FAERS Safety Report 13532232 (Version 4)
Quarter: 2017Q3

REPORT INFORMATION
  Report Type: Report from Study
  Country: US (occurrence: US)
  Receive Date: 20170510
  Receipt Date: 20170917
  Transmission Date: 20171127
  Serious: Yes (Other)
  Sender: FDA-Public Use
  Company Number: PHEH2017US013373

PATIENT
  Sex: Female

DRUGS (7)
  1. PRILOSEC [Concomitant]
     Active Substance: OMEPRAZOLE MAGNESIUM
     Indication: PRODUCT USED FOR UNKNOWN INDICATION
     Route: 065
  2. ZYRTEC-D [Concomitant]
     Active Substance: CETIRIZINE HYDROCHLORIDE\PSEUDOEPHEDRINE HYDROCHLORIDE
     Indication: PRODUCT USED FOR UNKNOWN INDICATION
     Route: 065
  3. COSENTYX [Suspect]
     Active Substance: SECUKINUMAB
     Dosage: 150 MG/ML, UNK
     Route: 065
     Dates: start: 201704
  4. ALLEGRA ALLERGY [Concomitant]
     Active Substance: FEXOFENADINE HYDROCHLORIDE
     Indication: PRODUCT USED FOR UNKNOWN INDICATION
     Dosage: 1 DF, UNK AS NEEDED ONCE A DAY
     Route: 048
  5. CELECOXIB. [Concomitant]
     Active Substance: CELECOXIB
     Indication: INFLAMMATION
     Dosage: 1 DF, UNK AS NEEDEDTWICE A DAY WITH FOOD
     Route: 048
  6. OMEPRAZOLE. [Concomitant]
     Active Substance: OMEPRAZOLE
     Indication: PRODUCT USED FOR UNKNOWN INDICATION
     Dosage: 1 DF, UNK ONCE A DAY AS NEEDED
     Route: 048
  7. COSENTYX [Suspect]
     Active Substance: SECUKINUMAB
     Indication: ANKYLOSING SPONDYLITIS
     Dosage: 150 MG/ML, UNK
     Route: 065
     Dates: start: 20170301

REACTIONS (11)
  - Alanine aminotransferase decreased [Unknown]
  - Skin ulcer [Unknown]
  - Benign neoplasm of skin [Not Recovered/Not Resolved]
  - Musculoskeletal discomfort [Unknown]
  - Precancerous skin lesion [Not Recovered/Not Resolved]
  - Skin infection [Unknown]
  - Ephelides [Unknown]
  - Malignant melanoma [Unknown]
  - Dermatitis [Unknown]
  - Platelet count decreased [Unknown]
  - Impaired healing [Unknown]
